FAERS Safety Report 13488806 (Version 3)
Quarter: 2017Q2

REPORT INFORMATION
  Report Type: Spontaneous
  Country: RO (occurrence: RO)
  Receive Date: 20170427
  Receipt Date: 20170606
  Transmission Date: 20170830
  Serious: Yes (Other)
  Sender: FDA-Public Use
  Company Number: RO-AUROBINDO-AUR-APL-2017-33068

PATIENT
  Age: 65 Year
  Sex: Female

DRUGS (1)
  1. METFORMIN [Suspect]
     Active Substance: METFORMIN HYDROCHLORIDE
     Indication: TYPE 2 DIABETES MELLITUS
     Dosage: 850 MG, 3 TIMES A DAY
     Route: 065

REACTIONS (9)
  - Cardiac arrest [Unknown]
  - Ventricular tachycardia [Unknown]
  - Poisoning [Unknown]
  - Acute kidney injury [Unknown]
  - Lactic acidosis [Unknown]
  - Nausea [Unknown]
  - Coma [Unknown]
  - Abdominal pain [Unknown]
  - Vomiting [Unknown]
